FAERS Safety Report 22525302 (Version 2)
Quarter: 2023Q2

REPORT INFORMATION
  Report Type: Spontaneous
  Country: US (occurrence: US)
  Receive Date: 20230606
  Receipt Date: 20230609
  Transmission Date: 20230721
  Serious: Yes (Life-Threatening, Other)
  Sender: FDA-Public Use
  Company Number: US-MYLANLABS-2023M1058364

PATIENT
  Sex: Female

DRUGS (12)
  1. PHENYTOIN [Suspect]
     Active Substance: PHENYTOIN
     Indication: Torsade de pointes
     Dosage: 4 MILLIGRAM/KILOGRAM, TID, THREE TIMES DAILY (DRUG DISCONTINUED)
     Route: 048
  2. PHENYTOIN [Suspect]
     Active Substance: PHENYTOIN
     Dosage: UNK, THEN RESTARTED
     Route: 048
  3. VERAPAMIL [Suspect]
     Active Substance: VERAPAMIL HYDROCHLORIDE
     Indication: Torsade de pointes
     Dosage: UNK
     Route: 065
  4. ISOPROTERENOL HYDROCHLORIDE [Suspect]
     Active Substance: ISOPROTERENOL HYDROCHLORIDE
     Indication: Torsade de pointes
     Dosage: UNK
     Route: 065
  5. MAGNESIUM [Suspect]
     Active Substance: MAGNESIUM
     Indication: Torsade de pointes
     Dosage: UNK
     Route: 065
  6. PROPRANOLOL [Suspect]
     Active Substance: PROPRANOLOL HYDROCHLORIDE
     Indication: Torsade de pointes
     Dosage: UNK
     Route: 065
  7. PROPRANOLOL [Suspect]
     Active Substance: PROPRANOLOL HYDROCHLORIDE
     Dosage: UNK,SHE WAS CONTINUED ON PHENYTOIN AND PROPRANOLOL.
     Route: 065
  8. MEXILETINE [Suspect]
     Active Substance: MEXILETINE
     Indication: Torsade de pointes
     Dosage: UNK
     Route: 065
  9. MEXILETINE [Suspect]
     Active Substance: MEXILETINE
     Dosage: UNK, MEXILETINE WAS SLOWLY WEANED OFF
     Route: 065
  10. FLECAINIDE [Suspect]
     Active Substance: FLECAINIDE
     Indication: Torsade de pointes
     Dosage: UNK
     Route: 065
  11. RANOLAZINE [Suspect]
     Active Substance: RANOLAZINE
     Indication: Torsade de pointes
     Dosage: UNK
     Route: 065
  12. DILTIAZEM [Concomitant]
     Active Substance: DILTIAZEM
     Indication: Torsade de pointes
     Dosage: UNK
     Route: 065

REACTIONS (4)
  - Arrhythmic storm [Unknown]
  - Drug ineffective [Unknown]
  - Gingival hypertrophy [Unknown]
  - Off label use [Unknown]
